FAERS Safety Report 8410561-3 (Version None)
Quarter: 2012Q2

REPORT INFORMATION
  Report Type: 
  Country: None (occurrence: None)
  Receive Date: 20120605
  Receipt Date: 20120530
  Transmission Date: 20120825
  Serious: No
  Sender: FDA-Public Use
  Company Number: US-PFIZER INC-2012130522

PATIENT
  Sex: Male
  Weight: 91.156 kg

DRUGS (5)
  1. PLAVIX [Concomitant]
     Indication: MYOCARDIAL INFARCTION
     Dosage: 75 MG, ONCE DAILY
     Route: 048
  2. ATENOLOL [Concomitant]
     Indication: MYOCARDIAL INFARCTION
     Dosage: 25 MG, 2X/DAY
  3. LIPITOR [Suspect]
     Dosage: 20 MG, 1X/DAY
     Route: 048
     Dates: start: 20120501, end: 20120523
  4. LIPITOR [Suspect]
     Dosage: 20 MG, 1X/DAY
     Route: 048
     Dates: start: 20120101, end: 20120401
  5. LIPITOR [Suspect]
     Dosage: 20 MG, 1X/DAY
     Route: 048
     Dates: start: 20120527

REACTIONS (2)
  - URTICARIA [None]
  - PRURITUS [None]
